FAERS Safety Report 5884356-9 (Version None)
Quarter: 2008Q3

REPORT INFORMATION
  Report Type: 
  Country: None (occurrence: None)
  Receive Date: 20080915
  Receipt Date: 20080903
  Transmission Date: 20090109
  Serious: Yes (Disabling, Other)
  Sender: FDA-Public Use
  Company Number: CA-PFIZER INC-2008027504

PATIENT
  Sex: Female
  Weight: 61 kg

DRUGS (4)
  1. DEPO-MEDROL [Suspect]
     Indication: BACK PAIN
     Route: 042
     Dates: start: 20080221, end: 20080221
  2. DEPO-MEDROL [Suspect]
     Indication: JOINT SPRAIN
  3. MOTRIN [Concomitant]
     Dates: start: 20080212, end: 20080414
  4. LYRICA [Concomitant]
     Dates: end: 20080326

REACTIONS (12)
  - ASTHENIA [None]
  - BURSITIS [None]
  - DIZZINESS [None]
  - DRY EYE [None]
  - FEELING COLD [None]
  - HEADACHE [None]
  - MALAISE [None]
  - NAUSEA [None]
  - PAIN IN EXTREMITY [None]
  - PRURITUS GENERALISED [None]
  - TENDONITIS [None]
  - TREMOR [None]
